FAERS Safety Report 18395590 (Version 6)
Quarter: 2020Q4

REPORT INFORMATION
  Report Type: Spontaneous
  Country: DE (occurrence: DE)
  Receive Date: 20201017
  Receipt Date: 20201119
  Transmission Date: 20210114
  Serious: Yes (Life-Threatening, Hospitalization, Other)
  Sender: FDA-Public Use
  Company Number: DE-AUROBINDO-AUR-APL-2020-051757

PATIENT
  Age: 51 Year
  Sex: Female

DRUGS (6)
  1. OLANZAPINE 7.5MG [Suspect]
     Active Substance: OLANZAPINE
     Dosage: 7.5 MILLIGRAM
     Route: 065
  2. DULOXETINE HYDROCHLORIDE. [Concomitant]
     Active Substance: DULOXETINE HYDROCHLORIDE
     Indication: MAJOR DEPRESSION
     Dosage: 90 MILLIGRAM, ONCE A DAY
     Route: 065
  3. OLANZAPINE 7.5MG [Suspect]
     Active Substance: OLANZAPINE
     Dosage: 160 DOSAGE FORM 1 TOTAL
     Route: 065
  4. LORAZEPAM. [Concomitant]
     Active Substance: LORAZEPAM
     Indication: MAJOR DEPRESSION
     Dosage: UNK, ONCE A DAY
     Route: 065
  5. OLANZAPINE 7.5MG [Suspect]
     Active Substance: OLANZAPINE
     Indication: MAJOR DEPRESSION
     Dosage: 5 MILLIGRAM, ONCE A DAY
     Route: 065
  6. OLANZAPINE 7.5MG [Suspect]
     Active Substance: OLANZAPINE
     Dosage: 1200 MILLIGRAM, ONCE A DAY ((160 DOSAGE FORM)
     Route: 065

REACTIONS (13)
  - Basal ganglia haemorrhage [Not Recovered/Not Resolved]
  - Quadriparesis [Not Recovered/Not Resolved]
  - Brain oedema [Not Recovered/Not Resolved]
  - Loss of consciousness [Not Recovered/Not Resolved]
  - Neuroleptic malignant syndrome [Recovered/Resolved]
  - Coma [Recovered/Resolved]
  - Suicide attempt [Not Recovered/Not Resolved]
  - Apallic syndrome [Not Recovered/Not Resolved]
  - Enlarged cerebral perivascular spaces [Unknown]
  - Suspected suicide attempt [Unknown]
  - Toxicity to various agents [Recovering/Resolving]
  - Cerebral haemorrhage [Not Recovered/Not Resolved]
  - Intentional overdose [Recovering/Resolving]
